FAERS Safety Report 9656306 (Version 1)
Quarter: 2013Q4

REPORT INFORMATION
  Report Type: Spontaneous
  Country: US (occurrence: US)
  Receive Date: 20131030
  Receipt Date: 20131030
  Transmission Date: 20140711
  Serious: No
  Sender: FDA-Public Use
  Company Number: US-PFIZER INC-2013306380

PATIENT
  Age: 31 Year
  Sex: Male
  Weight: 74.83 kg

DRUGS (1)
  1. VIAGRA [Suspect]
     Dosage: UNK, AS NEEDED
     Route: 048
     Dates: end: 20131024

REACTIONS (2)
  - Penile pain [Unknown]
  - Erection increased [Unknown]
